FAERS Safety Report 23371888 (Version 1)
Quarter: 2024Q1

REPORT INFORMATION
  Report Type: Spontaneous
  Country: US (occurrence: None)
  Receive Date: 20240105
  Receipt Date: 20240105
  Transmission Date: 20240410
  Serious: No
  Sender: FDA-Public Use
  Company Number: None

PATIENT

DRUGS (2)
  1. AMOXICILLIN AND CLAVULANATE POTASSIUM [Suspect]
     Active Substance: AMOXICILLIN\CLAVULANATE POTASSIUM
  2. AMOXICILLIN [Suspect]
     Active Substance: AMOXICILLIN

REACTIONS (5)
  - Product dispensing error [None]
  - Wrong product administered [None]
  - Overdose [None]
  - Headache [None]
  - Transcription medication error [None]
